FAERS Safety Report 23687389 (Version 1)
Quarter: 2024Q1

REPORT INFORMATION
  Report Type: Spontaneous
  Country: FR (occurrence: FR)
  Receive Date: 20240329
  Receipt Date: 20240329
  Transmission Date: 20240409
  Serious: Yes (Other)
  Sender: FDA-Public Use
  Company Number: FR-JNJFOC-20240335061

PATIENT
  Age: 80 Year
  Sex: Female
  Weight: 46 kg

DRUGS (4)
  1. LENALIDOMIDE [Suspect]
     Active Substance: LENALIDOMIDE
     Indication: Plasma cell myeloma
  2. DARATUMUMAB [Suspect]
     Active Substance: DARATUMUMAB
     Indication: Plasma cell myeloma
     Dosage: MOST RECENT DOSE ADMINISTERED ON 18-JAN-2024
     Route: 058
     Dates: start: 20190430
  3. BORTEZOMIB [Concomitant]
     Active Substance: BORTEZOMIB
     Indication: Plasma cell myeloma
     Dosage: LAST DOSE PRIOR TO THE EVENT WAS ADMINISTERED ON 04-OCT-2019
     Route: 058
     Dates: start: 20190430
  4. DEXAMETHASONE [Concomitant]
     Active Substance: DEXAMETHASONE
     Indication: Plasma cell myeloma

REACTIONS (2)
  - Radius fracture [Recovered/Resolved]
  - Fall [Recovered/Resolved]

NARRATIVE: CASE EVENT DATE: 20240206
